FAERS Safety Report 7432682-4 (Version None)
Quarter: 2011Q2

REPORT INFORMATION
  Report Type: 
  Country: None (occurrence: None)
  Receive Date: 20110422
  Receipt Date: 20110419
  Transmission Date: 20111010
  Serious: Yes (Hospitalization)
  Sender: FDA-Public Use
  Company Number: A0923500A

PATIENT
  Age: 40 Year
  Sex: Female
  Weight: 84 kg

DRUGS (2)
  1. ALLI [Suspect]
     Indication: WEIGHT LOSS DIET
     Route: 048
     Dates: start: 20100601, end: 20110216
  2. MULTI-VITAMIN [Concomitant]
     Route: 048

REACTIONS (7)
  - CATHETER PLACEMENT [None]
  - HYPOVITAMINOSIS [None]
  - BLOOD URINE PRESENT [None]
  - VITAMIN K DECREASED [None]
  - BLOOD IRON DECREASED [None]
  - RENAL HAEMORRHAGE [None]
  - CYSTOSCOPY [None]
